FAERS Safety Report 6464115-9 (Version None)
Quarter: 2009Q4

REPORT INFORMATION
  Report Type: 
  Country: None (occurrence: None)
  Receive Date: 20091130
  Receipt Date: 20091130
  Transmission Date: 20100525
  Serious: Yes (Other)
  Sender: FDA-Public Use
  Company Number: None

PATIENT
  Sex: Female
  Weight: 72.5755 kg

DRUGS (6)
  1. MIDAZOLAM HCL [Suspect]
     Indication: AMNESIA
     Dosage: 4 MG SINGLE DOSE IV BOLUS
     Route: 040
  2. MIDAZOLAM HCL [Suspect]
     Indication: COLONOSCOPY
     Dosage: 4 MG SINGLE DOSE IV BOLUS
     Route: 040
  3. MIDAZOLAM HCL [Suspect]
     Indication: SEDATION
     Dosage: 4 MG SINGLE DOSE IV BOLUS
     Route: 040
  4. MEPERIDINE HCL [Suspect]
     Indication: AMNESIA
     Dosage: 50 MG SINGLE DOSE IV BOLUS
     Route: 040
  5. MEPERIDINE HCL [Suspect]
     Indication: PAIN MANAGEMENT
     Dosage: 50 MG SINGLE DOSE IV BOLUS
     Route: 040
  6. MEPERIDINE HCL [Suspect]
     Indication: SEDATION
     Dosage: 50 MG SINGLE DOSE IV BOLUS
     Route: 040

REACTIONS (2)
  - BLOOD PRESSURE DECREASED [None]
  - PROCEDURAL COMPLICATION [None]
